FAERS Safety Report 12928548 (Version 1)
Quarter: 2016Q4

REPORT INFORMATION
  Report Type: Spontaneous
  Country: GB (occurrence: GB)
  Receive Date: 20161110
  Receipt Date: 20161110
  Transmission Date: 20170207
  Serious: Yes (Life-Threatening, Hospitalization, Disabling, Other)
  Sender: FDA-Public Use
  Company Number: GB-AUROBINDO-AUR-APL-2016-13566

PATIENT
  Age: 30 Year
  Sex: Female
  Weight: 47.62 kg

DRUGS (2)
  1. OMEPRAZOLE. [Concomitant]
     Active Substance: OMEPRAZOLE
     Indication: PRODUCT USED FOR UNKNOWN INDICATION
     Route: 065
  2. FLUOXETINE [Suspect]
     Active Substance: FLUOXETINE HYDROCHLORIDE
     Indication: ADJUSTMENT DISORDER WITH MIXED ANXIETY AND DEPRESSED MOOD
     Dosage: 1 DF, ONCE A DAY
     Route: 048
     Dates: start: 20160901, end: 20161004

REACTIONS (24)
  - Nausea [Recovered/Resolved with Sequelae]
  - Odynophagia [Recovering/Resolving]
  - Dysphemia [Recovered/Resolved with Sequelae]
  - Abnormal loss of weight [Recovering/Resolving]
  - Hypersensitivity [Not Recovered/Not Resolved]
  - Myalgia [Recovering/Resolving]
  - Confusional state [Not Recovered/Not Resolved]
  - Chest pain [Recovered/Resolved with Sequelae]
  - Hypoaesthesia [Recovered/Resolved with Sequelae]
  - Blepharospasm [Not Recovered/Not Resolved]
  - Muscle spasms [Recovered/Resolved with Sequelae]
  - Hyperhidrosis [Recovering/Resolving]
  - Tremor [Recovered/Resolved with Sequelae]
  - Malaise [Not Recovered/Not Resolved]
  - Paraesthesia [Recovering/Resolving]
  - Headache [Recovering/Resolving]
  - Alopecia [Recovering/Resolving]
  - Pain in extremity [Recovered/Resolved with Sequelae]
  - Dizziness [Not Recovered/Not Resolved]
  - Suicidal ideation [Recovered/Resolved with Sequelae]
  - Diplopia [Recovered/Resolved with Sequelae]
  - Arrhythmia [Recovered/Resolved with Sequelae]
  - Chills [Recovered/Resolved with Sequelae]
  - Vascular pain [Not Recovered/Not Resolved]
